FAERS Safety Report 19073274 (Version 1)
Quarter: 2021Q1

REPORT INFORMATION
  Report Type: Spontaneous
  Country: JP (occurrence: JP)
  Receive Date: 20210330
  Receipt Date: 20210330
  Transmission Date: 20210420
  Serious: Yes (Other)
  Sender: FDA-Public Use
  Company Number: JP-PFIZER INC-2021292783

PATIENT

DRUGS (1)
  1. SUTENT [Suspect]
     Active Substance: SUNITINIB MALATE

REACTIONS (5)
  - Loss of control of legs [Unknown]
  - Parkinson^s disease [Unknown]
  - Anaemia macrocytic [Unknown]
  - Dizziness [Unknown]
  - Neuropathy peripheral [Unknown]
